FAERS Safety Report 6123654-0 (Version None)
Quarter: 2009Q1

REPORT INFORMATION
  Report Type: 
  Country: None (occurrence: None)
  Receive Date: 20090319
  Receipt Date: 20090317
  Transmission Date: 20090719
  Serious: Yes (Life-Threatening, Hospitalization)
  Sender: FDA-Public Use
  Company Number: KR-JNJFOC-20090304279

PATIENT
  Age: 35 Year
  Sex: Male

DRUGS (2)
  1. ITRACONAZOLE [Suspect]
     Indication: ENDOCARDITIS
     Route: 048
  2. AMPHOTERICIN B [Suspect]
     Indication: ENDOCARDITIS
     Route: 042

REACTIONS (4)
  - ANEURYSM [None]
  - GASTROINTESTINAL HAEMORRHAGE [None]
  - HAEMATOCHEZIA [None]
  - ROAD TRAFFIC ACCIDENT [None]
